FAERS Safety Report 9445553 (Version 2)
Quarter: 2014Q3

REPORT INFORMATION
  Report Type: Spontaneous
  Country: US (occurrence: US)
  Receive Date: 20130807
  Receipt Date: 20140723
  Transmission Date: 20150326
  Serious: Yes (Hospitalization, Other)
  Sender: FDA-Public Use
  Company Number: US-009507513-1307USA017097

PATIENT
  Sex: Female

DRUGS (1)
  1. NUVARING [Suspect]
     Active Substance: ETHINYL ESTRADIOL\ETONOGESTREL
     Indication: CONTRACEPTION
     Dosage: INSERT 1 FOR 3 WEEKS, THEN REMOVE FOR 1 WEEK
     Route: 067
     Dates: start: 200809, end: 201005

REACTIONS (10)
  - Pulmonary embolism [Unknown]
  - Thrombosis [Unknown]
  - Deep vein thrombosis [Unknown]
  - Migraine [Unknown]
  - Ankle fracture [Unknown]
  - Embolism [Unknown]
  - Ankle fracture [Unknown]
  - Tonsillectomy [Unknown]
  - Biopsy uterus [Unknown]
  - Coagulopathy [Unknown]

NARRATIVE: CASE EVENT DATE: 20100410
